FAERS Safety Report 13395358 (Version 3)
Quarter: 2017Q3

REPORT INFORMATION
  Report Type: Spontaneous
  Country: US (occurrence: US)
  Receive Date: 20170403
  Receipt Date: 20170712
  Transmission Date: 20171127
  Serious: No
  Sender: FDA-Public Use
  Company Number: US-PFIZER INC-2017142188

PATIENT
  Age: 8 Year
  Sex: Female
  Weight: 19.5 kg

DRUGS (4)
  1. GENOTROPIN [Suspect]
     Active Substance: SOMATROPIN
     Indication: GROWTH RETARDATION
     Dosage: 1 MG, ONCE A DAY SIX DAYS A WEEK SUBCUTANEOUS INJECTION IN ARM
     Route: 058
     Dates: start: 20170311
  2. PERIACTIN [Concomitant]
     Active Substance: CYPROHEPTADINE HYDROCHLORIDE
     Indication: GROWTH RETARDATION
     Dosage: 4 MG, 2X/DAY
     Route: 048
     Dates: start: 2015
  3. MELATONIN [Concomitant]
     Active Substance: MELATONIN
     Indication: SLEEP DISORDER
     Dosage: 5MG TABLET DISSOVABLE TABLETS ONCE AS NEEDED AT NIGHT
     Route: 048
  4. PERIACTIN [Concomitant]
     Active Substance: CYPROHEPTADINE HYDROCHLORIDE
     Indication: APPETITE DISORDER

REACTIONS (1)
  - Abdominal pain upper [Not Recovered/Not Resolved]

NARRATIVE: CASE EVENT DATE: 20170327
